FAERS Safety Report 5589170-X (Version None)
Quarter: 2008Q1

REPORT INFORMATION
  Report Type: 
  Country: None (occurrence: None)
  Receive Date: 20080113
  Receipt Date: 20080110
  Transmission Date: 20080703
  Serious: Yes (Other)
  Sender: FDA-Public Use
  Company Number: US-BAYER-200712833BCC

PATIENT
  Age: 51 Year
  Sex: Male

DRUGS (1)
  1. ALEVE [Suspect]
     Indication: MYALGIA
     Dosage: UNIT DOSE: 220 MG
     Route: 048
     Dates: start: 20070831

REACTIONS (1)
  - BLOOD PRESSURE INCREASED [None]
